FAERS Safety Report 19376289 (Version 1)
Quarter: 2021Q2

REPORT INFORMATION
  Report Type: Report from Study
  Country: CN (occurrence: CN)
  Receive Date: 20210604
  Receipt Date: 20210604
  Transmission Date: 20210717
  Serious: Yes (Life-Threatening, Hospitalization, Disabling)
  Sender: FDA-Public Use
  Company Number: CN-ASTRAZENECA-2020SF67723

PATIENT
  Age: 22609 Day
  Sex: Male

DRUGS (72)
  1. DEXAMETHASONE SODIUM PHOSPHATE INJECTION [Concomitant]
     Active Substance: DEXAMETHASONE SODIUM PHOSPHATE
     Indication: HYPERSENSITIVITY
     Dosage: 15.0MG ONCE/SINGLE ADMINISTRATION
     Route: 042
     Dates: start: 20201203, end: 20201203
  2. PEGYLATED RECOMBINANT HUMAN GRANULOCYTE STIMULATING FACTOR INJECTION [Concomitant]
     Indication: LEUKOPENIA
     Dosage: 3.0MG ONCE/SINGLE ADMINISTRATION
     Route: 058
     Dates: start: 20201113, end: 20201113
  3. OMEPRAZOLE SODIUM FOR INJECTION [Concomitant]
     Indication: PROTOTHECOSIS
     Dosage: 40.0MG ONCE/SINGLE ADMINISTRATION
     Route: 042
     Dates: start: 20201115, end: 20201115
  4. MONOAMMONIUM GLYCYRRHIZINATE CYSTEINE SODIUM CHLORIDE INJECTION [Concomitant]
     Indication: ANTIALLERGIC THERAPY
     Dosage: 250.0ML ONCE/SINGLE ADMINISTRATION
     Route: 042
     Dates: start: 20201116, end: 20201116
  5. CILASTATIN SODIUM/IMIPENEM MONOHYDRATE [Concomitant]
     Indication: INFECTION
     Route: 042
     Dates: start: 20201213, end: 20201215
  6. BUDESONIDE SUSPENSION FOR INHALATION [Concomitant]
     Active Substance: BUDESONIDE
     Indication: INFECTION
     Route: 050
     Dates: start: 20201213, end: 20201215
  7. DURVALUMAB. [Suspect]
     Active Substance: DURVALUMAB
     Indication: TRANSITIONAL CELL CARCINOMA
     Route: 042
     Dates: start: 20201015, end: 20201015
  8. DURVALUMAB. [Suspect]
     Active Substance: DURVALUMAB
     Indication: TRANSITIONAL CELL CARCINOMA
     Route: 042
     Dates: start: 20210526, end: 20210526
  9. GEMCITABINE. [Suspect]
     Active Substance: GEMCITABINE
     Indication: TRANSITIONAL CELL CARCINOMA
     Dosage: 1000 MG/M2 EVERY THREE WEEKS
     Route: 042
     Dates: start: 20201116, end: 20201116
  10. GEMCITABINE. [Suspect]
     Active Substance: GEMCITABINE
     Indication: TRANSITIONAL CELL CARCINOMA
     Dosage: 1000 MG/M2 EVERY THREE WEEKS
     Route: 042
     Dates: start: 20200817, end: 20200817
  11. DEXAMETHASONE SODIUM PHOSPHATE INJECTION [Concomitant]
     Active Substance: DEXAMETHASONE SODIUM PHOSPHATE
     Indication: HYPERSENSITIVITY
     Dosage: 15.0MG ONCE/SINGLE ADMINISTRATION
     Route: 042
     Dates: start: 20201106, end: 20201106
  12. OMEPRAZOLE SODIUM FOR INJECTION [Concomitant]
     Indication: PROTOTHECOSIS
     Dosage: 40.0MG ONCE/SINGLE ADMINISTRATION
     Route: 042
     Dates: start: 20201106, end: 20201106
  13. PALONOSETRON HYDROCHLORIDE INJECTION [Concomitant]
     Active Substance: PALONOSETRON HYDROCHLORIDE
     Indication: ANTIEMETIC SUPPORTIVE CARE
     Dosage: 5.0ML ONCE/SINGLE ADMINISTRATION
     Route: 042
     Dates: start: 20201106, end: 20201106
  14. MONOAMMONIUM GLYCYRRHIZINATE CYSTEINE SODIUM CHLORIDE INJECTION [Concomitant]
     Indication: LIVIDITY
     Dosage: 250.0ML ONCE/SINGLE ADMINISTRATION
     Route: 042
     Dates: start: 20201127, end: 20201127
  15. MONOAMMONIUM GLYCYRRHIZINATE CYSTEINE SODIUM CHLORIDE INJECTION [Concomitant]
     Indication: ANTIALLERGIC THERAPY
     Dosage: 250.0ML ONCE/SINGLE ADMINISTRATION
     Route: 042
     Dates: start: 20201127, end: 20201127
  16. DURVALUMAB. [Suspect]
     Active Substance: DURVALUMAB
     Indication: TRANSITIONAL CELL CARCINOMA
     Route: 042
     Dates: start: 20200807, end: 20200807
  17. DURVALUMAB. [Suspect]
     Active Substance: DURVALUMAB
     Indication: TRANSITIONAL CELL CARCINOMA
     Route: 042
     Dates: start: 20210428, end: 20210428
  18. CISPLATIN. [Suspect]
     Active Substance: CISPLATIN
     Indication: TRANSITIONAL CELL CARCINOMA
     Dosage: 70 MG/M2 EVERY THREE WEEKS
     Route: 042
     Dates: start: 20200901, end: 20200901
  19. DEXAMETHASONE SODIUM PHOSPHATE INJECTION [Concomitant]
     Active Substance: DEXAMETHASONE SODIUM PHOSPHATE
     Indication: ANTIALLERGIC THERAPY
     Dosage: 5.0MG ONCE/SINGLE ADMINISTRATION
     Route: 042
     Dates: start: 20201113, end: 20201113
  20. RECOMBINANT HUMAN GRANULOCYTE STIMULATING FACTOR INJECTION [Concomitant]
     Indication: LEUKOPENIA
     Dosage: 300.0UG/INHAL ONCE/SINGLE ADMINISTRATION
     Route: 058
     Dates: start: 20201111, end: 20201111
  21. MONOAMMONIUM GLYCYRRHIZINATE CYSTEINE SODIUM CHLORIDE INJECTION [Concomitant]
     Indication: LIVIDITY
     Dosage: 250.0ML ONCE/SINGLE ADMINISTRATION
     Route: 042
     Dates: start: 20201106, end: 20201106
  22. MONOAMMONIUM GLYCYRRHIZINATE CYSTEINE SODIUM CHLORIDE INJECTION [Concomitant]
     Indication: LIVIDITY
     Dosage: 250.0ML ONCE/SINGLE ADMINISTRATION
     Route: 042
     Dates: start: 20201116, end: 20201116
  23. MONOAMMONIUM GLYCYRRHIZINATE CYSTEINE SODIUM CHLORIDE INJECTION [Concomitant]
     Indication: LIVIDITY
     Dosage: 250.0ML ONCE/SINGLE ADMINISTRATION
     Route: 042
     Dates: start: 20201203, end: 20201203
  24. BROMHEXINE HYDROCHLORIDE FOR INJECTION [Concomitant]
     Indication: RHESUS ANTIBODIES
     Route: 050
     Dates: start: 20201213, end: 20201215
  25. DURVALUMAB. [Suspect]
     Active Substance: DURVALUMAB
     Indication: TRANSITIONAL CELL CARCINOMA
     Route: 042
     Dates: start: 20201106, end: 20201106
  26. CISPLATIN. [Suspect]
     Active Substance: CISPLATIN
     Indication: TRANSITIONAL CELL CARCINOMA
     Dosage: 70 MG/M2 EVERY THREE WEEKS
     Route: 042
     Dates: start: 20201106, end: 20201106
  27. GEMCITABINE. [Suspect]
     Active Substance: GEMCITABINE
     Indication: TRANSITIONAL CELL CARCINOMA
     Dosage: 1000 MG/M2 EVERY THREE WEEKS
     Route: 042
     Dates: start: 20200807, end: 20200808
  28. GEMCITABINE. [Suspect]
     Active Substance: GEMCITABINE
     Indication: TRANSITIONAL CELL CARCINOMA
     Dosage: 1000 MG/M2 EVERY THREE WEEKS
     Route: 042
     Dates: start: 20200910, end: 20200910
  29. GEMCITABINE. [Suspect]
     Active Substance: GEMCITABINE
     Indication: TRANSITIONAL CELL CARCINOMA
     Dosage: 1000 MG/M2 EVERY THREE WEEKS
     Route: 042
     Dates: start: 20200923, end: 20200923
  30. DEXAMETHASONE SODIUM PHOSPHATE INJECTION [Concomitant]
     Active Substance: DEXAMETHASONE SODIUM PHOSPHATE
     Indication: ANTIALLERGIC THERAPY
     Dosage: 15.0MG ONCE/SINGLE ADMINISTRATION
     Route: 042
     Dates: start: 20201203, end: 20201203
  31. RECOMBINANT HUMAN GRANULOCYTE STIMULATING FACTOR INJECTION [Concomitant]
     Indication: LEUKOPENIA
     Dosage: 200.0UG/INHAL ONCE/SINGLE ADMINISTRATION
     Route: 058
     Dates: start: 20201202, end: 20201202
  32. RECOMBINANT HUMAN GRANULOCYTE STIMULATING FACTOR INJECTION [Concomitant]
     Indication: LEUKOPENIA
     Dosage: 200.0UG/INHAL ONCE/SINGLE ADMINISTRATION
     Route: 058
     Dates: start: 20201202, end: 20201202
  33. MONOAMMONIUM GLYCYRRHIZINATE CYSTEINE SODIUM CHLORIDE INJECTION [Concomitant]
     Indication: ANTIALLERGIC THERAPY
     Dosage: 250.0ML ONCE/SINGLE ADMINISTRATION
     Route: 042
     Dates: start: 20201106, end: 20201106
  34. QIANGGUSHENGXUE ORAL LIQUID [Concomitant]
     Indication: ANAEMIA
     Route: 048
     Dates: start: 20201124, end: 20201126
  35. DURVALUMAB. [Suspect]
     Active Substance: DURVALUMAB
     Indication: TRANSITIONAL CELL CARCINOMA
     Route: 042
     Dates: start: 20201127, end: 20201127
  36. DURVALUMAB. [Suspect]
     Active Substance: DURVALUMAB
     Indication: TRANSITIONAL CELL CARCINOMA
     Route: 042
     Dates: start: 20200831, end: 20200831
  37. CISPLATIN. [Suspect]
     Active Substance: CISPLATIN
     Indication: TRANSITIONAL CELL CARCINOMA
     Dosage: 70 MG/M2 EVERY THREE WEEKS
     Route: 042
     Dates: start: 20200808, end: 20200808
  38. GEMCITABINE. [Suspect]
     Active Substance: GEMCITABINE
     Indication: TRANSITIONAL CELL CARCINOMA
     Dosage: 1000 MG/M2 EVERY THREE WEEKS
     Route: 042
     Dates: start: 20201203, end: 20201203
  39. CARBOPLATIN. [Suspect]
     Active Substance: CARBOPLATIN
     Indication: TRANSITIONAL CELL CARCINOMA
     Route: 042
     Dates: start: 20201127, end: 20201127
  40. QIANGGU SHENGXUE ORAL LIQUID [Concomitant]
     Indication: ANAEMIA
     Route: 048
     Dates: start: 20201118, end: 20201119
  41. ACETYLCYSTEINE SOLUTION FOR INHALATION [Concomitant]
     Indication: LIVIDITY
     Route: 050
     Dates: start: 20201213, end: 20201215
  42. DURVALUMAB. [Suspect]
     Active Substance: DURVALUMAB
     Indication: TRANSITIONAL CELL CARCINOMA
     Route: 042
     Dates: start: 20210105, end: 20210105
  43. DURVALUMAB. [Suspect]
     Active Substance: DURVALUMAB
     Indication: TRANSITIONAL CELL CARCINOMA
     Route: 042
     Dates: start: 20210202, end: 20210202
  44. GEMCITABINE. [Suspect]
     Active Substance: GEMCITABINE
     Indication: TRANSITIONAL CELL CARCINOMA
     Dosage: 1000 MG/M2 EVERY THREE WEEKS
     Route: 042
     Dates: start: 20200831, end: 20200901
  45. DEXAMETHASONE SODIUM PHOSPHATE INJECTION [Concomitant]
     Active Substance: DEXAMETHASONE SODIUM PHOSPHATE
     Indication: ANTIALLERGIC THERAPY
     Dosage: 15.0MG ONCE/SINGLE ADMINISTRATION
     Route: 042
     Dates: start: 20201106, end: 20201106
  46. DEXAMETHASONE SODIUM PHOSPHATE INJECTION [Concomitant]
     Active Substance: DEXAMETHASONE SODIUM PHOSPHATE
     Indication: HYPERSENSITIVITY
     Dosage: 5.0MG ONCE/SINGLE ADMINISTRATION
     Route: 042
     Dates: start: 20201113, end: 20201113
  47. DEXAMETHASONE SODIUM PHOSPHATE INJECTION [Concomitant]
     Active Substance: DEXAMETHASONE SODIUM PHOSPHATE
     Indication: HYPERSENSITIVITY
     Dosage: 15.0MG ONCE/SINGLE ADMINISTRATION
     Route: 042
     Dates: start: 20201127, end: 20201127
  48. DEXAMETHASONE SODIUM PHOSPHATE INJECTION [Concomitant]
     Active Substance: DEXAMETHASONE SODIUM PHOSPHATE
     Indication: ANTIALLERGIC THERAPY
     Dosage: 15.0MG ONCE/SINGLE ADMINISTRATION
     Route: 042
     Dates: start: 20201127, end: 20201127
  49. RECOMBINANT HUMAN GRANULOCYTE STIMULATING FACTOR INJECTION [Concomitant]
     Indication: LEUKOPENIA
     Dosage: 300.0UG/INHAL ONCE/SINGLE ADMINISTRATION
     Route: 058
     Dates: start: 20201112, end: 20201112
  50. LINEZOLID GLUCOSE INJECTION [Concomitant]
     Indication: INFUSION
     Route: 042
     Dates: start: 20201213, end: 20201215
  51. DURVALUMAB. [Suspect]
     Active Substance: DURVALUMAB
     Indication: TRANSITIONAL CELL CARCINOMA
     Route: 042
     Dates: start: 20210302, end: 20210302
  52. CISPLATIN. [Suspect]
     Active Substance: CISPLATIN
     Indication: TRANSITIONAL CELL CARCINOMA
     Dosage: 70 MG/M2 EVERY THREE WEEKS
     Route: 042
     Dates: start: 20200923, end: 20200924
  53. CISPLATIN. [Suspect]
     Active Substance: CISPLATIN
     Indication: TRANSITIONAL CELL CARCINOMA
     Dosage: 70 MG/M2 EVERY THREE WEEKS
     Route: 042
     Dates: start: 20201015, end: 20201016
  54. OMEPRAZOLE SODIUM FOR INJECTION [Concomitant]
     Indication: PROTOTHECOSIS
     Dosage: 40.0MG ONCE/SINGLE ADMINISTRATION
     Route: 042
     Dates: start: 20201127, end: 20201127
  55. RECOMBINANT HUMAN GRANULOCYTE STIMULATING FACTOR INJECTION [Concomitant]
     Indication: LEUKOPENIA
     Dosage: 300.0UG/INHAL ONCE/SINGLE ADMINISTRATION
     Route: 058
     Dates: start: 20201105, end: 20201105
  56. QIANGGUSHENGXUE ORAL LIQUID [Concomitant]
     Indication: ANAEMIA
     Route: 048
     Dates: start: 20201118, end: 20201119
  57. DURVALUMAB. [Suspect]
     Active Substance: DURVALUMAB
     Indication: TRANSITIONAL CELL CARCINOMA
     Route: 042
     Dates: start: 20210331, end: 20210331
  58. GEMCITABINE. [Suspect]
     Active Substance: GEMCITABINE
     Indication: TRANSITIONAL CELL CARCINOMA
     Dosage: 1000 MG/M2 EVERY THREE WEEKS
     Route: 042
     Dates: start: 20201015, end: 20201015
  59. OMEPRAZOLE SODIUM FOR INJECTION [Concomitant]
     Indication: PROTOTHECOSIS
     Dosage: 40.0MG ONCE/SINGLE ADMINISTRATION
     Route: 042
     Dates: start: 20201116, end: 20201116
  60. OMEPRAZOLE SODIUM FOR INJECTION [Concomitant]
     Indication: PROTOTHECOSIS
     Dosage: 40.0MG ONCE/SINGLE ADMINISTRATION
     Route: 042
     Dates: start: 20201203, end: 20201203
  61. PALONOSETRON HYDROCHLORIDE INJECTION [Concomitant]
     Active Substance: PALONOSETRON HYDROCHLORIDE
     Indication: ANTIEMETIC SUPPORTIVE CARE
     Dosage: 5.0ML ONCE/SINGLE ADMINISTRATION
     Route: 042
     Dates: start: 20201203, end: 20201203
  62. MONOAMMONIUM GLYCYRRHIZINATE CYSTEINE SODIUM CHLORIDE INJECTION [Concomitant]
     Indication: ANTIALLERGIC THERAPY
     Dosage: 250.0ML ONCE/SINGLE ADMINISTRATION
     Route: 042
     Dates: start: 20201203, end: 20201203
  63. INTRAVENOUS INFUSION OF LEUKOCYTE DEPLETED SUSPENDED RED BLOOD CELL... [Concomitant]
     Indication: ANAEMIA
     Dosage: 1.00 U ONCE/SINGLE ADMINISTRATION
     Route: 042
     Dates: start: 20201113, end: 20201113
  64. BUPLEURUM INJECTION [Concomitant]
     Indication: FEELING HOT
     Dosage: 4.0ML ONCE/SINGLE ADMINISTRATION
     Route: 030
     Dates: start: 20201213, end: 20201213
  65. POTASSIUM CHLORIDE INJECTION [Concomitant]
     Active Substance: POTASSIUM CHLORIDE
     Indication: MINERAL SUPPLEMENTATION
     Dosage: 3.0G ONCE/SINGLE ADMINISTRATION
     Route: 042
     Dates: start: 20201213, end: 20201213
  66. LEUKOCYTE FREE SUSPENDED RED BLOOD CELLS [Concomitant]
     Indication: ANAEMIA
     Dosage: 3.00 U ONCE/SINGLE ADMINISTRATION
     Route: 042
     Dates: start: 20201213, end: 20201213
  67. AMBROXOL HYDROCHLORIDE INJECTION [Concomitant]
     Active Substance: AMBROXOL HYDROCHLORIDE
     Indication: RHESUS ANTIBODIES
     Route: 042
     Dates: start: 20201213, end: 20201215
  68. DURVALUMAB. [Suspect]
     Active Substance: DURVALUMAB
     Indication: TRANSITIONAL CELL CARCINOMA
     Route: 042
     Dates: start: 20200923, end: 20200923
  69. GEMCITABINE. [Suspect]
     Active Substance: GEMCITABINE
     Indication: TRANSITIONAL CELL CARCINOMA
     Dosage: 1000 MG/M2 EVERY THREE WEEKS
     Route: 042
     Dates: start: 20201106, end: 20201106
  70. GEMCITABINE. [Suspect]
     Active Substance: GEMCITABINE
     Indication: TRANSITIONAL CELL CARCINOMA
     Dosage: 1000 MG/M2 EVERY THREE WEEKS
     Route: 042
     Dates: start: 20201127, end: 20201127
  71. GEMCITABINE. [Suspect]
     Active Substance: GEMCITABINE
     Indication: TRANSITIONAL CELL CARCINOMA
     Dosage: 1000 MG/M2 EVERY THREE WEEKS
     Route: 042
     Dates: start: 20200929, end: 20200929
  72. GEMCITABINE. [Suspect]
     Active Substance: GEMCITABINE
     Indication: TRANSITIONAL CELL CARCINOMA
     Dosage: 1000 MG/M2 EVERY THREE WEEKS
     Route: 042
     Dates: start: 20201022, end: 20201022

REACTIONS (3)
  - Leukopenia [Recovered/Resolved]
  - Thrombocytopenia [Recovered/Resolved]
  - Haemoglobin decreased [Recovered/Resolved]

NARRATIVE: CASE EVENT DATE: 20201202
